FAERS Safety Report 6174104-X (Version None)
Quarter: 2009Q2

REPORT INFORMATION
  Report Type: 
  Country: None (occurrence: None)
  Receive Date: 20090430
  Receipt Date: 20090424
  Transmission Date: 20091009
  Serious: Yes (Other)
  Sender: FDA-Public Use
  Company Number: PHHY2009PL15707

PATIENT
  Sex: Male

DRUGS (1)
  1. EXELON [Suspect]
     Dosage: UNK
     Route: 062

REACTIONS (5)
  - CONDITION AGGRAVATED [None]
  - DELIRIUM [None]
  - DEMENTIA ALZHEIMER'S TYPE [None]
  - HALLUCINATION [None]
  - INSOMNIA [None]
